FAERS Safety Report 18697386 (Version 1)
Quarter: 2021Q1

REPORT INFORMATION
  Report Type: Spontaneous
  Country: US (occurrence: US)
  Receive Date: 20210104
  Receipt Date: 20210104
  Transmission Date: 20210419
  Serious: No
  Sender: FDA-Public Use
  Company Number: US-PFIZER INC-2020514135

PATIENT
  Age: 26 Year
  Sex: Female

DRUGS (2)
  1. CEFZIL [Suspect]
     Active Substance: CEFPROZIL
     Dosage: UNK
  2. TAPAZOLE [Suspect]
     Active Substance: METHIMAZOLE
     Dosage: UNK

REACTIONS (1)
  - Drug hypersensitivity [Unknown]
